FAERS Safety Report 24054890 (Version 1)
Quarter: 2024Q3

REPORT INFORMATION
  Report Type: Spontaneous
  Country: US (occurrence: US)
  Receive Date: 20240705
  Receipt Date: 20240705
  Transmission Date: 20241017
  Serious: Yes (Other)
  Sender: EPIC PHARM
  Company Number: US-EPICPHARMA-US-2024EPCSPO00808

PATIENT
  Sex: Female

DRUGS (10)
  1. RIFAMPIN [Suspect]
     Active Substance: RIFAMPIN
     Indication: Product use in unapproved indication
     Route: 065
  2. RIFAMPIN [Suspect]
     Active Substance: RIFAMPIN
     Indication: Product use in unapproved indication
  3. ETHAMBUTOL HYDROCHLORIDE [Suspect]
     Active Substance: ETHAMBUTOL HYDROCHLORIDE
     Indication: Product use in unapproved indication
     Route: 065
  4. ETHAMBUTOL HYDROCHLORIDE [Suspect]
     Active Substance: ETHAMBUTOL HYDROCHLORIDE
     Indication: Product use in unapproved indication
  5. AZITHROMYCIN [Suspect]
     Active Substance: AZITHROMYCIN
     Indication: Product use in unapproved indication
     Route: 065
  6. AZITHROMYCIN [Suspect]
     Active Substance: AZITHROMYCIN
     Indication: Product use in unapproved indication
  7. MOXIFLOXACIN HYDROCHLORIDE [Suspect]
     Active Substance: MOXIFLOXACIN HYDROCHLORIDE\MOXIFLOXACIN HYDROCHLORIDE MONOHYDRATE
     Indication: Product use in unapproved indication
     Route: 065
  8. MOXIFLOXACIN HYDROCHLORIDE [Suspect]
     Active Substance: MOXIFLOXACIN HYDROCHLORIDE\MOXIFLOXACIN HYDROCHLORIDE MONOHYDRATE
     Indication: Product use in unapproved indication
  9. CLOFAZIMINE [Suspect]
     Active Substance: CLOFAZIMINE
     Indication: Product use in unapproved indication
     Route: 065
  10. CLOFAZIMINE [Suspect]
     Active Substance: CLOFAZIMINE
     Indication: Product use in unapproved indication

REACTIONS (6)
  - Mycobacterial infection [Unknown]
  - Lung disorder [Unknown]
  - Condition aggravated [Unknown]
  - Drug-induced liver injury [Unknown]
  - Drug intolerance [Unknown]
  - Product use in unapproved indication [Unknown]
